FAERS Safety Report 25918399 (Version 1)
Quarter: 2025Q4

REPORT INFORMATION
  Report Type: Report from Study
  Country: GB (occurrence: None)
  Receive Date: 20251014
  Receipt Date: 20251014
  Transmission Date: 20260117
  Serious: Yes (Hospitalization)
  Sender: Alvotech
  Company Number: GB-ALVOTECHPMS-2025-ALVOTECHPMS-005374

PATIENT
  Age: 66 Year
  Sex: Female

DRUGS (1)
  1. USTEKINUMAB [Suspect]
     Active Substance: USTEKINUMAB
     Indication: Crohn^s disease
     Dosage: SOLUTION FOR INJECTION PRE-FILLED SYRINGES
     Route: 058
     Dates: start: 202505

REACTIONS (1)
  - Hip fracture [Unknown]
